FAERS Safety Report 6822378-1 (Version None)
Quarter: 2010Q3

REPORT INFORMATION
  Report Type: 
  Country: None (occurrence: None)
  Receive Date: 20100708
  Receipt Date: 20100625
  Transmission Date: 20110219
  Serious: Yes (Other)
  Sender: FDA-Public Use
  Company Number: PHHY2010CA32179

PATIENT
  Sex: Female

DRUGS (2)
  1. CLOZARIL [Suspect]
     Indication: SCHIZOPHRENIA
     Dosage: 200 IN AM AND 400 QHS
     Route: 048
     Dates: start: 20030220, end: 20100625
  2. CHEMOTHERAPEUTICS NOS [Concomitant]

REACTIONS (1)
  - BREAST CANCER [None]
